FAERS Safety Report 13372602 (Version 1)
Quarter: 2017Q1

REPORT INFORMATION
  Report Type: Spontaneous
  Country: GB (occurrence: US)
  Receive Date: 20170326
  Receipt Date: 20170326
  Transmission Date: 20170429
  Serious: Yes (Other)
  Sender: FDA-Public Use
  Company Number: None

PATIENT
  Age: 44 Year
  Sex: Female
  Weight: 47 kg

DRUGS (1)
  1. MIRENA [Suspect]
     Active Substance: LEVONORGESTREL
     Dates: start: 20160601

REACTIONS (5)
  - Fatigue [None]
  - Hepatomegaly [None]
  - Nausea [None]
  - Abdominal pain [None]
  - Headache [None]

NARRATIVE: CASE EVENT DATE: 20170324
